FAERS Safety Report 6174406-7 (Version None)
Quarter: 2009Q2

REPORT INFORMATION
  Report Type: 
  Country: None (occurrence: None)
  Receive Date: 20090430
  Receipt Date: 20090420
  Transmission Date: 20091009
  Serious: Yes (Death, Other)
  Sender: FDA-Public Use
  Company Number: US-GENENTECH-281908

PATIENT

DRUGS (2)
  1. ACTIVASE [Suspect]
     Indication: CEREBROVASCULAR ACCIDENT
     Dosage: UNK
     Route: 042
  2. ACTIVASE [Suspect]
     Indication: ISCHAEMIC STROKE

REACTIONS (3)
  - DEATH [None]
  - HAEMORRHAGE [None]
  - HAEMORRHAGE INTRACRANIAL [None]
